FAERS Safety Report 7942290-4 (Version None)
Quarter: 2011Q4

REPORT INFORMATION
  Report Type: 
  Country: None (occurrence: None)
  Receive Date: 20111128
  Receipt Date: 20111109
  Transmission Date: 20120403
  Serious: No
  Sender: FDA-Public Use
  Company Number: US-ABBOTT-11P-163-0873047-00

PATIENT
  Sex: Male
  Weight: 90.8 kg

DRUGS (2)
  1. ANDROGEL [Suspect]
     Indication: HYPOGONADISM
     Dosage: 2 PUMPS PER DAY
     Dates: start: 20100101, end: 20110101
  2. ANDROGEL [Suspect]
     Dosage: 1 PUMP PER DAY.
     Dates: start: 20111105

REACTIONS (4)
  - NOCTURNAL DYSPNOEA [None]
  - NOCTURIA [None]
  - SLEEP APNOEA SYNDROME [None]
  - DYSPNOEA [None]
